FAERS Safety Report 12406099 (Version 1)
Quarter: 2016Q2

REPORT INFORMATION
  Report Type: Spontaneous
  Country: US (occurrence: US)
  Receive Date: 20160526
  Receipt Date: 20160526
  Transmission Date: 20160815
  Serious: No
  Sender: FDA-Public Use
  Company Number: US-TEVA-658193ACC

PATIENT
  Age: 49 Year
  Sex: Female
  Weight: 78.09 kg

DRUGS (3)
  1. PLAN B ONE-STEP [Suspect]
     Active Substance: LEVONORGESTREL
     Indication: POST COITAL CONTRACEPTION
     Dates: start: 20160407
  2. CORTICOSTEROIDS [Concomitant]
     Active Substance: CORTICOSTEROID NOS
     Indication: ASTHMA
     Dosage: EVERYDAY
  3. THEOPHYLLINE [Concomitant]
     Active Substance: THEOPHYLLINE ANHYDROUS
     Indication: ASTHMA
     Dosage: EVERYDAY

REACTIONS (2)
  - Vaginal haemorrhage [Not Recovered/Not Resolved]
  - Menstruation irregular [Not Recovered/Not Resolved]

NARRATIVE: CASE EVENT DATE: 20160415
